FAERS Safety Report 5754030-8 (Version None)
Quarter: 2008Q2

REPORT INFORMATION
  Report Type: 
  Country: None (occurrence: None)
  Receive Date: 20080530
  Receipt Date: 20080519
  Transmission Date: 20081010
  Serious: Yes (Other)
  Sender: FDA-Public Use
  Company Number: PHHY2008BE08866

PATIENT

DRUGS (5)
  1. DIOVAN [Suspect]
     Indication: HYPERTENSION
     Dosage: 80MG/DAY
     Route: 048
  2. DIOVAN [Interacting]
     Dosage: 160MG/DAY
     Route: 048
  3. DIOVAN [Interacting]
     Dosage: 80MG/DAY
  4. ALCOHOL [Interacting]
  5. XYZAL [Concomitant]

REACTIONS (3)
  - ALCOHOL INTERACTION [None]
  - BLOOD PRESSURE DECREASED [None]
  - LOSS OF CONSCIOUSNESS [None]
